FAERS Safety Report 23605501 (Version 2)
Quarter: 2024Q1

REPORT INFORMATION
  Report Type: Spontaneous
  Country: CZ (occurrence: CZ)
  Receive Date: 20240307
  Receipt Date: 20240313
  Transmission Date: 20240410
  Serious: Yes (Death, Life-Threatening, Hospitalization, Other)
  Sender: FDA-Public Use
  Company Number: CZ-EMA-DD-20240228-7482677-065115

PATIENT
  Age: 3 Month
  Sex: Male

DRUGS (6)
  1. FLUDARABINE PHOSPHATE [Suspect]
     Active Substance: FLUDARABINE PHOSPHATE
     Indication: Immunodeficiency
     Dosage: 40 MG/M2, QD (FROM DAYS -6 TO -3)
  2. ALEMTUZUMAB [Suspect]
     Active Substance: ALEMTUZUMAB
     Indication: Immunodeficiency
     Dosage: 1 MG/KG (FROM DAYS -8 TO -6)
  3. MYCOPHENOLATE MOFETIL [Suspect]
     Active Substance: MYCOPHENOLATE MOFETIL
     Indication: Prophylaxis against transplant rejection
     Dosage: UNK, FROM DAY 1
  4. BUSULFAN [Suspect]
     Active Substance: BUSULFAN
     Indication: Autologous haematopoietic stem cell transplant
     Dosage: 500-700 NG/ML FROM DAYS -5 TO -2
  5. GANCICLOVIR [Suspect]
     Active Substance: GANCICLOVIR
     Indication: Cytomegalovirus infection
     Dosage: AT THE AGE OF 3 MONTHS
  6. CYCLOSPORINE [Suspect]
     Active Substance: CYCLOSPORINE
     Indication: Prophylaxis against transplant rejection
     Dosage: UNK, FROM DAY 1

REACTIONS (16)
  - Scrotal abscess [Fatal]
  - Vomiting [Fatal]
  - Failure to thrive [Fatal]
  - Septic shock [Fatal]
  - Abdominal pain [Fatal]
  - Malnutrition [Fatal]
  - Cytomegalovirus infection reactivation [Fatal]
  - Pyrexia [Fatal]
  - Dysphagia [Fatal]
  - Neutropenia [Fatal]
  - Multiple organ dysfunction syndrome [Fatal]
  - Mucosal inflammation [Fatal]
  - Upper respiratory tract infection [Fatal]
  - Sepsis [Fatal]
  - Candida infection [Fatal]
  - Off label use [Fatal]
